FAERS Safety Report 8092437-7 (Version None)
Quarter: 2012Q1

REPORT INFORMATION
  Report Type: 
  Country: None (occurrence: None)
  Receive Date: 20120128
  Receipt Date: 20110831
  Transmission Date: 20120608
  Serious: No
  Sender: FDA-Public Use
  Company Number: US-ABBOTT-11P-163-0851666-00

PATIENT
  Sex: Male
  Weight: 61.29 kg

DRUGS (8)
  1. ASPIRIN [Concomitant]
     Indication: PROPHYLAXIS
  2. METHOTREXATE [Concomitant]
     Indication: ANKYLOSING SPONDYLITIS
  3. ASPIRIN [Concomitant]
     Indication: CARDIAC DISORDER
  4. HUMIRA [Suspect]
     Indication: ANKYLOSING SPONDYLITIS
     Dates: start: 20110201
  5. AZILECT [Concomitant]
     Indication: PARKINSON'S DISEASE
  6. FOLIC ACID [Concomitant]
     Indication: SUPPLEMENTATION THERAPY
  7. SULFASALAZINE [Concomitant]
     Indication: ANKYLOSING SPONDYLITIS
  8. CELEBREX [Concomitant]
     Indication: INFLAMMATION

REACTIONS (4)
  - INJECTION SITE PAIN [None]
  - INJECTION SITE INDURATION [None]
  - INJECTION SITE PRURITUS [None]
  - INJECTION SITE ERYTHEMA [None]
